FAERS Safety Report 4385400-0 (Version None)
Quarter: 2004Q2

REPORT INFORMATION
  Report Type: 
  Country: None (occurrence: None)
  Receive Date: 20040622
  Receipt Date: 20040615
  Transmission Date: 20050107
  Serious: Yes (Life-Threatening)
  Sender: FDA-Public Use
  Company Number: STA-AE-04-MTX-267

PATIENT
  Age: 50 Year
  Sex: Female

DRUGS (15)
  1. METHOTREXATE [Suspect]
     Indication: RHEUMATOID ARTHRITIS
  2. ANAKINRA (ANAKINRA) [Suspect]
  3. REMICADE (INFLIXIMAB) [Suspect]
     Dosage: 10 MG/ML, UNK
  4. RITUXIMAB (RITUXIMAB) [Suspect]
  5. PREDNISOLONE [Concomitant]
  6. MORPHINE SULFATE [Concomitant]
  7. PENICILLAMINE [Concomitant]
  8. AZATHIOPRINE [Concomitant]
  9. CYCLOPHOSPHAMIDE [Concomitant]
  10. CYCLOSPORINE [Concomitant]
  11. IMMUNE GLOBULIN INTRAVENOUS (HUMAN) [Concomitant]
  12. PLAQUENIL [Concomitant]
  13. LLOPROST (ILOPROST) [Concomitant]
  14. ARAVA [Concomitant]
  15. METHYLPREDNISOLONE [Concomitant]

REACTIONS (3)
  - METASTASES TO LUNG [None]
  - OVARIAN CANCER METASTATIC [None]
  - PLEURAL EFFUSION [None]
